FAERS Safety Report 5323804-X (Version None)
Quarter: 2007Q2

REPORT INFORMATION
  Report Type: 
  Country: None (occurrence: None)
  Receive Date: 20070514
  Receipt Date: 20070511
  Transmission Date: 20071010
  Serious: Yes (Hospitalization)
  Sender: FDA-Public Use
  Company Number: A0650994A

PATIENT
  Age: 58 Year
  Sex: Female

DRUGS (7)
  1. TYKERB [Suspect]
     Indication: BREAST CANCER
     Dosage: 5TAB PER DAY
     Route: 048
     Dates: start: 20070401
  2. XELODA [Suspect]
     Indication: BREAST CANCER
     Dosage: 5TAB PER DAY
     Route: 048
     Dates: end: 20070401
  3. RANITIDINE [Concomitant]
  4. ENABLEX [Concomitant]
  5. LEVAQUIN [Concomitant]
  6. PRENATAL VITAMINS [Concomitant]
  7. IMODIUM [Concomitant]

REACTIONS (6)
  - DEHYDRATION [None]
  - DIARRHOEA [None]
  - DRY SKIN [None]
  - HYPERKERATOSIS [None]
  - RASH PAPULAR [None]
  - SKIN WARM [None]
